FAERS Safety Report 21473350 (Version 1)
Quarter: 2022Q4

REPORT INFORMATION
  Report Type: Report from Study
  Country: PH (occurrence: PH)
  Receive Date: 20221018
  Receipt Date: 20221018
  Transmission Date: 20230112
  Serious: Yes (Death, Other)
  Sender: FDA-Public Use
  Company Number: PH-OTSUKA-2022_048727

PATIENT
  Age: 59 Year
  Sex: Male

DRUGS (1)
  1. TOLVAPTAN [Suspect]
     Active Substance: TOLVAPTAN
     Indication: Product used for unknown indication
     Dosage: 1 DF (2-3 X A WEEK )
     Route: 048
     Dates: start: 20211001

REACTIONS (5)
  - Death [Fatal]
  - Dysuria [Unknown]
  - Dyspnoea [Unknown]
  - Abdominal distension [Unknown]
  - Inappropriate schedule of product administration [Unknown]

NARRATIVE: CASE EVENT DATE: 20211001
